FAERS Safety Report 7699736-9 (Version None)
Quarter: 2011Q3

REPORT INFORMATION
  Report Type: 
  Country: None (occurrence: None)
  Receive Date: 20110822
  Receipt Date: 20110811
  Transmission Date: 20111222
  Serious: No
  Sender: FDA-Public Use
  Company Number: US-BIOGENIDEC-2011BI030677

PATIENT
  Age: 47 Year
  Sex: Male

DRUGS (2)
  1. TYSABRI [Suspect]
     Indication: MULTIPLE SCLEROSIS
     Route: 042
     Dates: start: 20110810, end: 20110810
  2. TYSABRI [Suspect]
     Route: 042
     Dates: start: 20090707, end: 20090806

REACTIONS (7)
  - RASH [None]
  - PRURITUS [None]
  - MUSCLE RIGIDITY [None]
  - HYPERHIDROSIS [None]
  - URTICARIA [None]
  - DIZZINESS [None]
  - INFUSION RELATED REACTION [None]
